FAERS Safety Report 7721130-2 (Version None)
Quarter: 2011Q3

REPORT INFORMATION
  Report Type: 
  Country: None (occurrence: None)
  Receive Date: 20110831
  Receipt Date: 20110818
  Transmission Date: 20111222
  Serious: Yes (Other)
  Sender: FDA-Public Use
  Company Number: FR-PFIZER INC-2011199520

PATIENT
  Age: 36 Year
  Sex: Female

DRUGS (2)
  1. PROPRANOLOL [Suspect]
     Indication: MIGRAINE
     Dosage: 160 MG, 1X/DAY
     Route: 048
     Dates: start: 20110301
  2. METOCLOPRAMIDE [Interacting]
     Indication: MIGRAINE
     Dosage: 2 DF, SINGLE
     Dates: start: 20110512, end: 20110512

REACTIONS (3)
  - ORTHOSTATIC HYPOTENSION [None]
  - DRUG INTERACTION [None]
  - MALAISE [None]
